FAERS Safety Report 7081417-6 (Version None)
Quarter: 2010Q4

REPORT INFORMATION
  Report Type: 
  Country: None (occurrence: None)
  Receive Date: 20101102
  Receipt Date: 20101102
  Transmission Date: 20110411
  Serious: No
  Sender: FDA-Public Use
  Company Number: None

PATIENT
  Age: 52 Year
  Sex: Male

DRUGS (6)
  1. AZITHROMYCIN DEHYDRATE UNKNOWN UNKNOWN [Suspect]
     Indication: PRODUCT USED FOR UNKNOWN INDICATION
     Dosage: 250MG ONCE PO
     Route: 048
     Dates: start: 20100916, end: 20100916
  2. FOLIC ACID [Concomitant]
  3. THIAMINE HCL [Concomitant]
  4. MULTI-VITAMIN [Concomitant]
  5. OXYCODONE HCL [Concomitant]
  6. MS CONTIN [Concomitant]

REACTIONS (1)
  - ERYTHEMA [None]
